FAERS Safety Report 12755893 (Version 1)
Quarter: 2016Q3

REPORT INFORMATION
  Report Type: Report from Study
  Country: US (occurrence: US)
  Receive Date: 20160916
  Receipt Date: 20160916
  Transmission Date: 20161109
  Serious: Yes (Hospitalization, Other)
  Sender: FDA-Public Use
  Company Number: US-BAYER-2016-169927

PATIENT
  Age: 73 Year
  Sex: Male

DRUGS (1)
  1. STIVARGA [Suspect]
     Active Substance: REGORAFENIB
     Indication: COLON CANCER
     Dosage: 160 MG, QD (21 DAYS ON 7 DAYS OFF)
     Route: 048
     Dates: start: 20160624, end: 20160810

REACTIONS (4)
  - Pneumonia [None]
  - Hospitalisation [None]
  - Blister [Unknown]
  - Adverse event [None]

NARRATIVE: CASE EVENT DATE: 20160810
